FAERS Safety Report 13575229 (Version 1)
Quarter: 2017Q2

REPORT INFORMATION
  Report Type: Spontaneous
  Country: US (occurrence: US)
  Receive Date: 20170523
  Receipt Date: 20170523
  Transmission Date: 20170830
  Serious: Yes (Hospitalization)
  Sender: FDA-Public Use
  Company Number: None

PATIENT
  Age: 26 Year
  Sex: Female
  Weight: 77.18 kg

DRUGS (2)
  1. STIMATE [Suspect]
     Active Substance: DESMOPRESSIN ACETATE
     Indication: BRAIN INJURY
     Dosage: STIMATE 1.5MG/ML 2 SPRAYS TWICE DAIL
     Dates: start: 20160126
  2. STIMATE [Suspect]
     Active Substance: DESMOPRESSIN ACETATE
     Indication: DIABETES INSIPIDUS
     Dosage: STIMATE 1.5MG/ML 2 SPRAYS TWICE DAIL
     Dates: start: 20160126

REACTIONS (2)
  - Blood sodium increased [None]
  - Seizure [None]

NARRATIVE: CASE EVENT DATE: 20170519
